FAERS Safety Report 14634073 (Version 1)
Quarter: 2018Q1

REPORT INFORMATION
  Report Type: Spontaneous
  Country: FR (occurrence: FR)
  Receive Date: 20180314
  Receipt Date: 20180314
  Transmission Date: 20180509
  Serious: Yes (Hospitalization)
  Sender: FDA-Public Use
  Company Number: FR-CIPLA LTD.-2018FR10991

PATIENT

DRUGS (1)
  1. ENTECAVIR. [Suspect]
     Active Substance: ENTECAVIR
     Indication: HEPATITIS VIRAL
     Dosage: 0.5 MG, UNK
     Route: 048
     Dates: start: 20180105, end: 20180114

REACTIONS (3)
  - Diarrhoea [Recovering/Resolving]
  - Lactic acidosis [Recovered/Resolved]
  - Melaena [Recovered/Resolved]

NARRATIVE: CASE EVENT DATE: 20180113
